FAERS Safety Report 9191331 (Version 1)
Quarter: 2013Q1

REPORT INFORMATION
  Report Type: Spontaneous
  Country: GB (occurrence: GB)
  Receive Date: 20130326
  Receipt Date: 20130326
  Transmission Date: 20140127
  Serious: Yes (Hospitalization, Other)
  Sender: FDA-Public Use
  Company Number: GB-PFIZER INC-AUR-APL-2010-00991

PATIENT
  Age: 67 Year
  Sex: Female

DRUGS (2)
  1. FLUOXETINE HCL [Suspect]
     Indication: DEPRESSION
     Dosage: 60 MG, 1X/DAY
     Route: 065
  2. ONDANSETRON HCL [Interacting]
     Indication: NAUSEA
     Dosage: 4 MG, 2X/DAY

REACTIONS (15)
  - Drug interaction [Recovering/Resolving]
  - Long QT syndrome [Recovering/Resolving]
  - Cardiac disorder [Recovering/Resolving]
  - Brain natriuretic peptide increased [Recovering/Resolving]
  - Troponin I increased [Recovering/Resolving]
  - Stress cardiomyopathy [Recovering/Resolving]
  - Electrolyte depletion [Recovering/Resolving]
  - Emotional distress [Recovering/Resolving]
  - Torsade de pointes [Recovering/Resolving]
  - Syncope [Recovering/Resolving]
  - Ventricular tachycardia [Recovering/Resolving]
  - Electrocardiogram T wave inversion [Recovering/Resolving]
  - Blood potassium decreased [Recovering/Resolving]
  - Blood magnesium decreased [Recovering/Resolving]
  - Crying [Recovering/Resolving]
